FAERS Safety Report 24557296 (Version 1)
Quarter: 2024Q4

REPORT INFORMATION
  Report Type: Spontaneous
  Country: NL (occurrence: NL)
  Receive Date: 20241028
  Receipt Date: 20241028
  Transmission Date: 20250115
  Serious: Yes (Other)
  Sender: JOHNSON AND JOHNSON
  Company Number: None

PATIENT
  Age: 17 Year
  Sex: Female

DRUGS (1)
  1. TOPAMAX [Suspect]
     Active Substance: TOPIRAMATE
     Indication: Post-traumatic stress disorder
     Dosage: 1 PIECE ONCE A DAY
     Route: 048
     Dates: start: 20240913

REACTIONS (2)
  - Hallucination [Recovered/Resolved]
  - Sedation [Recovered/Resolved]
